FAERS Safety Report 20062529 (Version 1)
Quarter: 2021Q4

REPORT INFORMATION
  Report Type: Spontaneous
  Country: BR (occurrence: None)
  Receive Date: 20211112
  Receipt Date: 20211112
  Transmission Date: 20220303
  Serious: Yes (Death, Other)
  Sender: FDA-Public Use
  Company Number: 2021A803152

PATIENT
  Sex: Female

DRUGS (2)
  1. TAGRISSO [Suspect]
     Active Substance: OSIMERTINIB
     Indication: Lung neoplasm malignant
     Route: 048
     Dates: start: 201904, end: 201905
  2. TAGRISSO [Suspect]
     Active Substance: OSIMERTINIB
     Indication: Hepatic neoplasm
     Route: 048
     Dates: start: 201904, end: 201905

REACTIONS (11)
  - Thrombosis [Fatal]
  - Pneumonitis [Fatal]
  - Hepatitis [Fatal]
  - Hepatic cirrhosis [Fatal]
  - Hepatic encephalopathy [Fatal]
  - Coma [Fatal]
  - Renal impairment [Fatal]
  - Respiratory failure [Fatal]
  - Hepatic failure [Fatal]
  - Synovial cyst [Fatal]
  - Cough [Fatal]

NARRATIVE: CASE EVENT DATE: 20190101
